FAERS Safety Report 15946164 (Version 1)
Quarter: 2019Q1

REPORT INFORMATION
  Report Type: Spontaneous
  Country: IT (occurrence: IT)
  Receive Date: 20190212
  Receipt Date: 20190212
  Transmission Date: 20190417
  Serious: Yes (Other)
  Sender: FDA-Public Use
  Company Number: IT-TEVA-2019-IT-1008824

PATIENT
  Age: 41 Year
  Sex: Female
  Weight: 65 kg

DRUGS (5)
  1. FLUOROURACIL. [Concomitant]
     Active Substance: FLUOROURACIL
     Indication: ADENOCARCINOMA GASTRIC
     Route: 042
     Dates: start: 20180514, end: 20181112
  2. DOCETAXEL. [Suspect]
     Active Substance: DOCETAXEL
     Indication: ADENOCARCINOMA GASTRIC
     Route: 042
     Dates: start: 20180514, end: 20181029
  3. FLUOROURACIL. [Concomitant]
     Active Substance: FLUOROURACIL
     Route: 040
     Dates: start: 20180514, end: 20180514
  4. LEVOLEUCOVORIN. [Concomitant]
     Active Substance: LEVOLEUCOVORIN
     Indication: ADENOCARCINOMA GASTRIC
     Route: 042
     Dates: start: 20180514, end: 20181112
  5. OXALIPLATIN. [Concomitant]
     Active Substance: OXALIPLATIN
     Indication: ADENOCARCINOMA GASTRIC
     Route: 042
     Dates: start: 20180514, end: 20181112

REACTIONS (5)
  - Malaise [Recovering/Resolving]
  - Dyspnoea [Recovering/Resolving]
  - Erythema [Recovering/Resolving]
  - Feeling hot [Recovering/Resolving]
  - Bronchostenosis [Recovering/Resolving]

NARRATIVE: CASE EVENT DATE: 20180514
